FAERS Safety Report 6101652-0 (Version None)
Quarter: 2009Q1

REPORT INFORMATION
  Report Type: 
  Country: None (occurrence: None)
  Receive Date: 20090304
  Receipt Date: 20090220
  Transmission Date: 20090719
  Serious: Yes (Other)
  Sender: FDA-Public Use
  Company Number: B0555493A

PATIENT
  Age: 57 Year
  Sex: Female

DRUGS (2)
  1. NIQUITIN GUM [Suspect]
     Indication: SMOKING CESSATION THERAPY
     Dosage: 4LOZ PER DAY
     Route: 002
     Dates: start: 20081231, end: 20081231
  2. ASPIRIN [Concomitant]

REACTIONS (3)
  - DIZZINESS [None]
  - DRUG INEFFECTIVE [None]
  - SYNCOPE [None]
